FAERS Safety Report 19175904 (Version 2)
Quarter: 2021Q2

REPORT INFORMATION
  Report Type: Spontaneous
  Country: US (occurrence: US)
  Receive Date: 20210424
  Receipt Date: 20210427
  Transmission Date: 20210717
  Serious: Yes (Death)
  Sender: FDA-Public Use
  Company Number: US-ROCHE-2817332

PATIENT
  Age: 78 Year
  Sex: Female

DRUGS (1)
  1. XELODA [Suspect]
     Active Substance: CAPECITABINE
     Indication: BREAST CANCER FEMALE
     Route: 048
     Dates: start: 20210316

REACTIONS (2)
  - Breast cancer metastatic [Fatal]
  - Failure to thrive [Fatal]

NARRATIVE: CASE EVENT DATE: 20210326
